FAERS Safety Report 7221814-9 (Version None)
Quarter: 2011Q1

REPORT INFORMATION
  Report Type: 
  Country: None (occurrence: None)
  Receive Date: 20110104
  Receipt Date: 20101214
  Transmission Date: 20110831
  Serious: Yes (Other)
  Sender: FDA-Public Use
  Company Number: FR-004359

PATIENT
  Sex: Male

DRUGS (1)
  1. DEGARELIX (FIRMAGON) 240 MG [Suspect]
     Indication: PROSTATE CANCER
     Dosage: 240 MG 1X SUBCUTANEOUS
     Route: 058
     Dates: start: 20101201, end: 20101201

REACTIONS (1)
  - HEPATITIS [None]
